FAERS Safety Report 11620430 (Version 4)
Quarter: 2016Q1

REPORT INFORMATION
  Report Type: Spontaneous
  Country: US (occurrence: US)
  Receive Date: 20151012
  Receipt Date: 20160212
  Transmission Date: 20160525
  Serious: Yes (Other)
  Sender: FDA-Public Use
  Company Number: US-PFIZER INC-2015333380

PATIENT
  Age: 75 Year
  Sex: Male
  Weight: 73 kg

DRUGS (2)
  1. ATORVASTATIN CALCIUM. [Suspect]
     Active Substance: ATORVASTATIN CALCIUM
     Indication: BLOOD CHOLESTEROL
     Dosage: 20 MG, DAILY AT BEDTIME
     Route: 048
     Dates: start: 201212
  2. ATORVASTATIN CALCIUM. [Suspect]
     Active Substance: ATORVASTATIN CALCIUM
     Dosage: 20 MG, 3X/DAY
     Dates: start: 201212, end: 201304

REACTIONS (5)
  - Muscle spasms [Recovered/Resolved]
  - Neoplasm malignant [Recovered/Resolved]
  - Constipation [Recovered/Resolved]
  - Flatulence [Recovered/Resolved]
  - Abdominal distension [Recovered/Resolved]

NARRATIVE: CASE EVENT DATE: 201212
